FAERS Safety Report 4716294-9 (Version None)
Quarter: 2005Q3

REPORT INFORMATION
  Report Type: 
  Country: None (occurrence: None)
  Receive Date: 20050711
  Receipt Date: 20041110
  Transmission Date: 20060218
  Serious: Yes (Life-Threatening, Hospitalization)
  Sender: FDA-Public Use
  Company Number: 364761

PATIENT
  Age: 26 Year
  Sex: Female
  Weight: 60.3 kg

DRUGS (5)
  1. CELLCEPT [Suspect]
     Indication: SYSTEMIC LUPUS ERYTHEMATOSUS
     Dosage: 100 MG 2 PER DAY ORAL
     Route: 048
     Dates: start: 20021206, end: 20040107
  2. PREDNISONE TAB [Concomitant]
  3. PLAQUENIL [Concomitant]
  4. ENALAPRIL MALEATE [Concomitant]
  5. INDERAL [Concomitant]

REACTIONS (2)
  - BENIGN HYDATIDIFORM MOLE [None]
  - METASTASES TO LUNG [None]
